FAERS Safety Report 6105678-2 (Version None)
Quarter: 2009Q1

REPORT INFORMATION
  Report Type: 
  Country: None (occurrence: None)
  Receive Date: 20090306
  Receipt Date: 20090224
  Transmission Date: 20090719
  Serious: Yes (Other)
  Sender: FDA-Public Use
  Company Number: AU-PFIZER INC-2009177566

PATIENT

DRUGS (7)
  1. ATENOLOL [Suspect]
     Indication: ARRHYTHMIA
     Dosage: UNK
     Route: 048
     Dates: start: 20040101
  2. ATENOLOL [Suspect]
     Dosage: UNK
     Route: 048
     Dates: start: 20081223, end: 20090206
  3. COVERSYL [Concomitant]
  4. PARIET [Concomitant]
     Dosage: 1 DF, 2X/DAY
  5. LIPIDIL [Concomitant]
     Dosage: 145 MG, UNK
     Dates: start: 20070906
  6. DIAMICRON [Concomitant]
     Dosage: 2 DF, HS
  7. METFORMIN HYDROCHLORIDE [Concomitant]
     Dosage: 1 DF, 2X/DAY

REACTIONS (3)
  - ARRHYTHMIA SUPRAVENTRICULAR [None]
  - DRUG INEFFECTIVE [None]
  - VENTRICULAR EXTRASYSTOLES [None]
